FAERS Safety Report 9238574 (Version 2)
Quarter: 2013Q2

REPORT INFORMATION
  Report Type: Spontaneous
  Country: US (occurrence: None)
  Receive Date: 20130416
  Receipt Date: 20130605
  Transmission Date: 20140414
  Serious: Yes (Other)
  Sender: FDA-Public Use
  Company Number: NSR_01110_2013

PATIENT
  Age: 54 Year
  Sex: Female

DRUGS (1)
  1. CLONIDINE [Suspect]
     Indication: PRODUCT USED FOR UNKNOWN INDICATION
     Dosage: (DF [PATCH])
     Dates: end: 20130327

REACTIONS (5)
  - Reaction to drug excipients [None]
  - Lip swelling [None]
  - Swollen tongue [None]
  - Tachycardia [None]
  - Hypertension [None]
